FAERS Safety Report 11684325 (Version 1)
Quarter: 2015Q4

REPORT INFORMATION
  Report Type: Spontaneous
  Country: BR (occurrence: BR)
  Receive Date: 20151029
  Receipt Date: 20151029
  Transmission Date: 20160304
  Serious: Yes (Other)
  Sender: FDA-Public Use
  Company Number: BR-ABBVIE-15P-020-1490679-00

PATIENT
  Age: 8 Month
  Sex: Female
  Weight: 7.45 kg

DRUGS (2)
  1. CIPROFLOXACIN HYDROCHLORIDE. [Concomitant]
     Active Substance: CIPROFLOXACIN HYDROCHLORIDE
     Indication: EAR INFECTION
     Dosage: 6 DROPS; ON THE RIGHT EAR
     Route: 061
     Dates: start: 20151013
  2. KLARICID [Suspect]
     Active Substance: CLARITHROMYCIN
     Indication: EAR INFECTION
     Route: 048
     Dates: start: 20151013

REACTIONS (3)
  - Cyanosis [Recovered/Resolved]
  - Apnoea [Recovered/Resolved]
  - Choking [Recovered/Resolved]

NARRATIVE: CASE EVENT DATE: 20151020
